FAERS Safety Report 15112629 (Version 2)
Quarter: 2018Q3

REPORT INFORMATION
  Report Type: Spontaneous
  Country: JP (occurrence: JP)
  Receive Date: 20180705
  Receipt Date: 20180803
  Transmission Date: 20181010
  Serious: No
  Sender: FDA-Public Use
  Company Number: JP-FRESENIUS KABI-FK201711252

PATIENT
  Age: 48 Year
  Sex: Female
  Weight: 55 kg

DRUGS (9)
  1. VOLUVEN [Suspect]
     Active Substance: HYDROXYETHYL STARCH 130/0.4
     Indication: HYPOVOLAEMIA
     Dosage: UNKNOWN
     Route: 041
     Dates: start: 20171219, end: 20171219
  2. PHYSIO [Concomitant]
     Route: 041
     Dates: end: 20171219
  3. ESLAX [Concomitant]
     Active Substance: ROCURONIUM BROMIDE
     Indication: HYPOTONIA
     Route: 042
     Dates: start: 20171219, end: 20171219
  4. NEO?SYNESIN [Concomitant]
     Active Substance: PHENYLEPHRINE HYDROCHLORIDE
     Indication: VASOPRESSIVE THERAPY
     Route: 041
     Dates: start: 20171219, end: 20171219
  5. DIPRIVAN [Concomitant]
     Active Substance: PROPOFOL
     Indication: SEDATION
     Route: 042
     Dates: start: 20171219, end: 20171219
  6. ULTIVA [Concomitant]
     Active Substance: REMIFENTANIL HYDROCHLORIDE
     Indication: SEDATION
     Route: 042
     Dates: start: 20171219, end: 20171219
  7. ESLAX [Concomitant]
     Active Substance: ROCURONIUM BROMIDE
     Dosage: 10MG 8TIMES
     Route: 042
     Dates: start: 20171219, end: 20171219
  8. DEXART [Concomitant]
     Active Substance: DEXAMETHASONE SODIUM PHOSPHATE
     Indication: ANTIEMETIC SUPPORTIVE CARE
     Route: 042
     Dates: start: 20171219, end: 20171219
  9. POPSCAINE [Concomitant]
     Active Substance: LEVOBUPIVACAINE HYDROCHLORIDE
     Route: 008
     Dates: start: 20171219, end: 20171219

REACTIONS (1)
  - Hypersensitivity [Recovered/Resolved]

NARRATIVE: CASE EVENT DATE: 20171219
